FAERS Safety Report 8184412-9 (Version None)
Quarter: 2012Q1

REPORT INFORMATION
  Report Type: 
  Country: None (occurrence: None)
  Receive Date: 20120305
  Receipt Date: 20120228
  Transmission Date: 20120608
  Serious: Yes (Hospitalization, Other)
  Sender: FDA-Public Use
  Company Number: FR-BAXTER-2012BH006214

PATIENT
  Age: 77 Year
  Sex: Male

DRUGS (6)
  1. LEVOTHYROXINE SODIUM [Concomitant]
     Indication: PRODUCT USED FOR UNKNOWN INDICATION
     Route: 048
  2. ATACAND [Concomitant]
     Indication: PRODUCT USED FOR UNKNOWN INDICATION
     Route: 065
     Dates: start: 20111114
  3. CYCLOPHOSPHAMIDE [Suspect]
     Indication: LEUKAEMIA PLASMACYTIC
     Route: 065
     Dates: start: 20110829, end: 20111230
  4. VELCADE [Suspect]
     Indication: LEUKAEMIA PLASMACYTIC
     Route: 042
     Dates: start: 20110829, end: 20111230
  5. DEXAMETHASONE [Concomitant]
     Indication: LEUKAEMIA PLASMACYTIC
     Route: 065
  6. NICARDIPINE HYDROCHLORIDE [Concomitant]
     Indication: PRODUCT USED FOR UNKNOWN INDICATION
     Route: 065
     Dates: start: 20111001

REACTIONS (4)
  - HYPOTENSION [None]
  - ANAEMIA [None]
  - PARAESTHESIA [None]
  - DIARRHOEA [None]
